FAERS Safety Report 22644832 (Version 1)
Quarter: 2023Q2

REPORT INFORMATION
  Report Type: Spontaneous
  Country: US (occurrence: US)
  Receive Date: 20230627
  Receipt Date: 20230627
  Transmission Date: 20230722
  Serious: No
  Sender: FDA-Public Use
  Company Number: US-BAYER-2023A085226

PATIENT

DRUGS (1)
  1. GADAVIST [Suspect]
     Active Substance: GADOBUTROL
     Dosage: UNK, ONCE

REACTIONS (3)
  - Oropharyngeal discomfort [None]
  - Flushing [None]
  - Nausea [None]

NARRATIVE: CASE EVENT DATE: 20230608
